FAERS Safety Report 6285966-X (Version None)
Quarter: 2009Q3

REPORT INFORMATION
  Report Type: 
  Country: None (occurrence: None)
  Receive Date: 20090728
  Receipt Date: 20090724
  Transmission Date: 20100115
  Serious: Yes (Hospitalization)
  Sender: FDA-Public Use
  Company Number: FR-JNJFOC-20090707763

PATIENT
  Age: 71 Year
  Sex: Female

DRUGS (13)
  1. TAVANIC [Suspect]
     Indication: BRONCHITIS
     Route: 048
  2. ORELOX [Interacting]
     Indication: BRONCHITIS
     Route: 048
  3. FLUINDIONE [Interacting]
     Indication: ATRIAL FIBRILLATION
     Route: 048
  4. AMIODARONE [Concomitant]
     Indication: ATRIAL FIBRILLATION
     Route: 048
  5. BETAXOLOL [Concomitant]
     Indication: HYPERTENSION
     Route: 048
  6. LERCAN [Concomitant]
     Indication: HYPERTENSION
     Route: 048
  7. LANSOPRAZOLE [Concomitant]
     Route: 048
  8. KARDEGIC [Concomitant]
     Route: 048
  9. CRESTOR [Concomitant]
     Indication: HYPERCHOLESTEROLAEMIA
     Route: 048
  10. EFFERALGAN [Concomitant]
     Route: 048
  11. ANAFRANIL [Concomitant]
     Route: 065
  12. XANAX [Concomitant]
     Route: 048
  13. ESTAZOLAM [Concomitant]
     Route: 048

REACTIONS (7)
  - CHOLELITHIASIS [None]
  - DRUG INTERACTION [None]
  - ECCHYMOSIS [None]
  - GASTRITIS [None]
  - INTERNATIONAL NORMALISED RATIO INCREASED [None]
  - MELAENA [None]
  - WEIGHT DECREASED [None]
